FAERS Safety Report 6927896-3 (Version None)
Quarter: 2010Q3

REPORT INFORMATION
  Report Type: 
  Country: None (occurrence: None)
  Receive Date: 20100816
  Receipt Date: 20100816
  Transmission Date: 20110219
  Serious: Yes (Other)
  Sender: FDA-Public Use
  Company Number: None

PATIENT
  Age: 69 Year
  Sex: Male
  Weight: 104.3273 kg

DRUGS (2)
  1. TAMSULOSIN HCL [Suspect]
     Indication: PROSTATOMEGALY
     Dosage: 0.4MG. ONCE A DAY PO
     Route: 048
     Dates: start: 20100721, end: 20100812
  2. TAMSULOSIN HCL [Suspect]
     Indication: URINE OUTPUT DECREASED
     Dosage: 0.4MG. ONCE A DAY PO
     Route: 048
     Dates: start: 20100721, end: 20100812

REACTIONS (4)
  - DRUG INEFFECTIVE [None]
  - PRODUCT FORMULATION ISSUE [None]
  - PRODUCT SUBSTITUTION ISSUE [None]
  - SLEEP DISORDER DUE TO GENERAL MEDICAL CONDITION, INSOMNIA TYPE [None]
